FAERS Safety Report 6558478-3 (Version None)
Quarter: 2010Q1

REPORT INFORMATION
  Report Type: 
  Country: None (occurrence: None)
  Receive Date: 20100129
  Receipt Date: 20100119
  Transmission Date: 20100710
  Serious: Yes (Other)
  Sender: FDA-Public Use
  Company Number: IN-BAXTER-2010BH000808

PATIENT
  Age: 45 Year

DRUGS (3)
  1. SODIUM CHLORIDE 0.9% IN PLASTIC CONTAINER [Suspect]
     Indication: CHEMOTHERAPY
     Route: 042
     Dates: start: 20100111, end: 20100111
  2. ADRIAMYCIN PFS [Concomitant]
     Indication: CHEMOTHERAPY
     Route: 042
     Dates: start: 20100111, end: 20100111
  3. ENDOXAN [Concomitant]
     Indication: CHEMOTHERAPY
     Route: 042
     Dates: start: 20100111, end: 20100111

REACTIONS (1)
  - CHILLS [None]
